FAERS Safety Report 7364390-2 (Version None)
Quarter: 2011Q1

REPORT INFORMATION
  Report Type: 
  Country: None (occurrence: None)
  Receive Date: 20110321
  Receipt Date: 20110309
  Transmission Date: 20110831
  Serious: Yes (Hospitalization, Other)
  Sender: FDA-Public Use
  Company Number: BE-JNJFOC-20110306324

PATIENT
  Age: 59 Year
  Sex: Female

DRUGS (6)
  1. OFLOXACIN [Suspect]
     Indication: PRODUCT USED FOR UNKNOWN INDICATION
     Route: 065
  2. CYCLOSPORINE [Concomitant]
     Indication: PRODUCT USED FOR UNKNOWN INDICATION
     Route: 065
  3. BLOOD TRANSFUSION [Concomitant]
     Route: 065
  4. ITRACONAZOLE [Suspect]
     Indication: PRODUCT USED FOR UNKNOWN INDICATION
     Route: 065
  5. ITRACONAZOLE [Suspect]
     Route: 065
  6. PLATELETS [Concomitant]
     Route: 065

REACTIONS (4)
  - VANISHING BILE DUCT SYNDROME [None]
  - HEPATITIS [None]
  - HEPATOTOXICITY [None]
  - HEPATOBILIARY DISEASE [None]
